FAERS Safety Report 10518923 (Version 1)
Quarter: 2014Q4

REPORT INFORMATION
  Report Type: Spontaneous
  Country: US (occurrence: None)
  Receive Date: 20141014
  Receipt Date: 20141014
  Transmission Date: 20150528
  Serious: Yes (Disabling)
  Sender: FDA-Public Use
  Company Number: None

PATIENT
  Age: 47 Year
  Sex: Female
  Weight: 181.44 kg

DRUGS (2)
  1. CIPRO GENERIC CIPROFLOXEN [Suspect]
     Active Substance: CIPROFLOXACIN HYDROCHLORIDE
     Indication: SKIN INFECTION
     Dosage: 1 PILL TWICE DAILY TAKEN BY MOUTH
     Route: 048
  2. CIPRO GENERIC CIPROFLOXEN [Suspect]
     Active Substance: CIPROFLOXACIN HYDROCHLORIDE
     Indication: FURUNCLE
     Dosage: 1 PILL TWICE DAILY TAKEN BY MOUTH
     Route: 048

REACTIONS (3)
  - Ligament rupture [None]
  - Muscular weakness [None]
  - Myalgia [None]
